FAERS Safety Report 5097839-9 (Version None)
Quarter: 2006Q3

REPORT INFORMATION
  Report Type: 
  Country: None (occurrence: None)
  Receive Date: 20060905
  Receipt Date: 20060831
  Transmission Date: 20061208
  Serious: Yes (Life-Threatening, Other)
  Sender: FDA-Public Use
  Company Number: 2006S1000178

PATIENT
  Age: 2 Day
  Sex: Male

DRUGS (5)
  1. INOMAX [Suspect]
     Indication: LUNG DISORDER
     Dosage: 5 PPM; INH_GAS; INH;
     Route: 055
     Dates: start: 20060829
  2. INOMAX [Suspect]
     Indication: PROPHYLAXIS
     Dosage: 5 PPM; INH_GAS; INH;
     Route: 055
     Dates: start: 20060829
  3. PENICILLIN G (BENZYLPENICILIN) [Concomitant]
  4. TOBRAMYCIN [Concomitant]
  5. HYDROCORTISONE [Concomitant]

REACTIONS (4)
  - ACIDOSIS [None]
  - BLOOD PRESSURE DECREASED [None]
  - NEONATAL DISORDER [None]
  - PULMONARY HAEMORRHAGE [None]
